FAERS Safety Report 18944642 (Version 1)
Quarter: 2021Q1

REPORT INFORMATION
  Report Type: Spontaneous
  Country: US (occurrence: US)
  Receive Date: 20210225
  Receipt Date: 20210225
  Transmission Date: 20210420
  Serious: Yes (Hospitalization)
  Sender: FDA-Public Use
  Company Number: None

PATIENT
  Age: 71 Year
  Sex: Male
  Weight: 104.33 kg

DRUGS (1)
  1. TIZANIDINE HCL 2MG TABS [Suspect]
     Active Substance: TIZANIDINE HYDROCHLORIDE
     Indication: PAIN
     Route: 048
     Dates: start: 20180920, end: 20181016

REACTIONS (5)
  - Feeling abnormal [None]
  - Presyncope [None]
  - Bradycardia [None]
  - Dizziness [None]
  - Somnolence [None]

NARRATIVE: CASE EVENT DATE: 20180116
